FAERS Safety Report 23711655 (Version 1)
Quarter: 2024Q2

REPORT INFORMATION
  Report Type: Spontaneous
  Country: BE (occurrence: BE)
  Receive Date: 20240405
  Receipt Date: 20240405
  Transmission Date: 20240715
  Serious: Yes (Other)
  Sender: FDA-Public Use
  Company Number: BE-AMGEN-BELCT2024064233

PATIENT
  Age: 46 Year
  Sex: Female

DRUGS (2)
  1. TALIMOGENE LAHERPAREPVEC [Suspect]
     Active Substance: TALIMOGENE LAHERPAREPVEC
     Indication: Breast cancer metastatic
     Dosage: UNK
     Route: 065
     Dates: start: 20210111, end: 20230116
  2. PEMBROLIZUMAB [Suspect]
     Active Substance: PEMBROLIZUMAB
     Indication: Breast cancer
     Dosage: UNK
     Route: 065
     Dates: start: 20210111, end: 20230116

REACTIONS (1)
  - Breast cancer recurrent [Unknown]

NARRATIVE: CASE EVENT DATE: 20240301
